FAERS Safety Report 5475800-X (Version None)
Quarter: 2007Q4

REPORT INFORMATION
  Report Type: 
  Country: None (occurrence: None)
  Receive Date: 20071003
  Receipt Date: 20070927
  Transmission Date: 20080405
  Serious: Yes (Hospitalization)
  Sender: FDA-Public Use
  Company Number: A0684720A

PATIENT
  Age: 26 Year
  Sex: Male

DRUGS (2)
  1. AGENERASE [Suspect]
     Dosage: 700MG UNKNOWN
     Route: 048
     Dates: start: 20040301
  2. NO CONCURRENT MEDICATION [Concomitant]

REACTIONS (4)
  - OVERWEIGHT [None]
  - RESTLESSNESS [None]
  - SCHIZOPHRENIA, PARANOID TYPE [None]
  - SELF MUTILATION [None]
